FAERS Safety Report 4478613-0 (Version None)
Quarter: 2004Q4

REPORT INFORMATION
  Report Type: 
  Country: None (occurrence: None)
  Receive Date: 20040923
  Receipt Date: 20040527
  Transmission Date: 20050328
  Serious: No
  Sender: FDA-Public Use
  Company Number: 206769

PATIENT
  Age: 70 Year
  Sex: Male
  Weight: 91.6 kg

DRUGS (7)
  1. AVASTIN [Suspect]
     Indication: COLON CANCER
     Dosage: 460 MG, Q14D, INTRAVENOUS
     Route: 042
  2. LEUKINE [Suspect]
     Indication: DRUG USE FOR UNKNOWN INDICATION
     Dosage: SEE IMAGE
     Dates: start: 20040514, end: 20040514
  3. LEUKINE [Suspect]
     Indication: DRUG USE FOR UNKNOWN INDICATION
     Dosage: SEE IMAGE
     Dates: start: 20040517, end: 20040517
  4. LEUKINE [Suspect]
     Indication: DRUG USE FOR UNKNOWN INDICATION
     Dosage: SEE IMAGE
     Dates: start: 20040518, end: 20040518
  5. CAMPTOSAR [Suspect]
     Indication: COLON CANCER
     Dosage: 200 MG, INTRAVENOUS
     Route: 042
     Dates: start: 20040512
  6. FLUOROURACIL [Concomitant]
  7. CHEMOTHERAPY (ANTINEOPLASTIC AGENT NOS) [Concomitant]

REACTIONS (1)
  - ERYTHEMA [None]
